FAERS Safety Report 11766486 (Version 1)
Quarter: 2015Q4

REPORT INFORMATION
  Report Type: Spontaneous
  Country: US (occurrence: US)
  Receive Date: 20151123
  Receipt Date: 20151123
  Transmission Date: 20160304
  Serious: No
  Sender: FDA-Public Use
  Company Number: US-009507513-1511USA009334

PATIENT
  Sex: Male

DRUGS (1)
  1. ASMANEX [Suspect]
     Active Substance: MOMETASONE FUROATE
     Indication: ASTHMA
     Dosage: 110 MICROGRAM, ONCE DAILY
     Route: 048
     Dates: start: 201506

REACTIONS (2)
  - Product quality issue [Unknown]
  - Cough [Not Recovered/Not Resolved]

NARRATIVE: CASE EVENT DATE: 2015
